FAERS Safety Report 21643583 (Version 4)
Quarter: 2023Q1

REPORT INFORMATION
  Report Type: Spontaneous
  Country: US (occurrence: US)
  Receive Date: 20221125
  Receipt Date: 20230313
  Transmission Date: 20230418
  Serious: Yes (Other)
  Sender: FDA-Public Use
  Company Number: US-BRISTOL-MYERS SQUIBB COMPANY-2022-141078

PATIENT
  Age: 67 Year
  Sex: Female

DRUGS (3)
  1. REVLIMID [Suspect]
     Active Substance: LENALIDOMIDE
     Indication: Diffuse large B-cell lymphoma
     Route: 048
     Dates: start: 202209, end: 202211
  2. REVLIMID [Suspect]
     Active Substance: LENALIDOMIDE
     Dosage: DOSE CHANGED
     Route: 048
     Dates: start: 202211, end: 202212
  3. REVLIMID [Suspect]
     Active Substance: LENALIDOMIDE
     Route: 048

REACTIONS (8)
  - Neutropenia [Unknown]
  - Peripheral swelling [Recovered/Resolved]
  - Rash [Unknown]
  - Insomnia [Unknown]
  - White blood cell count decreased [Unknown]
  - Off label use [Unknown]
  - Epistaxis [Unknown]
  - Ear discomfort [Unknown]

NARRATIVE: CASE EVENT DATE: 20221109
